FAERS Safety Report 9466284 (Version 1)
Quarter: 2013Q3

REPORT INFORMATION
  Report Type: Spontaneous
  Country: US (occurrence: US)
  Receive Date: 20130820
  Receipt Date: 20130820
  Transmission Date: 20140515
  Serious: No
  Sender: FDA-Public Use
  Company Number: US-VERTEX PHARMACEUTICALS INC-2013-008872

PATIENT
  Age: 55 Year
  Sex: Male
  Weight: 73.16 kg

DRUGS (3)
  1. INCIVEK [Suspect]
     Indication: HEPATITIS C
     Dosage: 750 MG, TID
     Route: 048
     Dates: start: 20130727
  2. COPEGUS [Suspect]
     Indication: HEPATITIS C
     Dosage: 600 MG, BID
     Dates: start: 20130727
  3. PEGASYS [Suspect]
     Indication: HEPATITIS C
     Dosage: 1 SHOT, QW
     Dates: start: 201305

REACTIONS (2)
  - Ocular hyperaemia [Unknown]
  - Drug dose omission [Unknown]
